FAERS Safety Report 8216639-1 (Version None)
Quarter: 2012Q1

REPORT INFORMATION
  Report Type: 
  Country: None (occurrence: None)
  Receive Date: 20120316
  Receipt Date: 20120313
  Transmission Date: 20120608
  Serious: Yes (Hospitalization)
  Sender: FDA-Public Use
  Company Number: US-ROXANE LABORATORIES, INC.-2012-RO-00868RO

PATIENT

DRUGS (1)
  1. METHADONE HCL [Suspect]
     Route: 055

REACTIONS (1)
  - TOXICITY TO VARIOUS AGENTS [None]
